FAERS Safety Report 5616561-0 (Version None)
Quarter: 2008Q1

REPORT INFORMATION
  Report Type: 
  Country: None (occurrence: None)
  Receive Date: 20080207
  Receipt Date: 20070628
  Transmission Date: 20080703
  Serious: No
  Sender: FDA-Public Use
  Company Number: A0660740A

PATIENT
  Age: 55 Year
  Sex: Female

DRUGS (2)
  1. PAXIL [Suspect]
     Indication: DEPRESSION
     Dosage: 20MG PER DAY
     Route: 048
     Dates: start: 19980101
  2. UNKNOWN MEDICATION [Concomitant]

REACTIONS (9)
  - ASTHENIA [None]
  - BALANCE DISORDER [None]
  - DIZZINESS [None]
  - DYSPEPSIA [None]
  - FATIGUE [None]
  - MIGRAINE [None]
  - PANIC ATTACK [None]
  - RHINORRHOEA [None]
  - TREMOR [None]
